FAERS Safety Report 6153274-3 (Version None)
Quarter: 2009Q2

REPORT INFORMATION
  Report Type: 
  Country: None (occurrence: None)
  Receive Date: 20090409
  Receipt Date: 20090331
  Transmission Date: 20091009
  Serious: Yes (Death)
  Sender: FDA-Public Use
  Company Number: GXKR2009GB00840

PATIENT
  Age: 49 Year
  Sex: Female

DRUGS (10)
  1. METFORMIN HCL [Suspect]
     Indication: DIABETES MELLITUS
     Dosage: 2 G, ORAL
     Route: 048
  2. SOLIAN (AMISULPRIDE) [Suspect]
     Dosage: 500 MG, BID, ORAL
     Route: 048
  3. DIAZEPAM [Concomitant]
  4. HYDROCORTISONE [Concomitant]
  5. INSULIN (INSULIN) [Concomitant]
  6. MOVICOL (MACROGOL, POTASSIUM CHLORIDE, SODIUM BICARBONATE, SODIUM CHLO [Concomitant]
  7. QUETIAPINE FUMARATE [Concomitant]
  8. SENNA (SENNA, SENNA ALEXANDRINA) [Concomitant]
  9. TRAZODONE HCL [Concomitant]
  10. ZOPICLONE (ZOPICLONE) [Concomitant]

REACTIONS (2)
  - DRUG LEVEL INCREASED [None]
  - DRUG TOXICITY [None]
